FAERS Safety Report 23162081 (Version 1)
Quarter: 2023Q4

REPORT INFORMATION
  Report Type: Spontaneous
  Country: BE (occurrence: None)
  Receive Date: 20231109
  Receipt Date: 20231109
  Transmission Date: 20240109
  Serious: Yes (Hospitalization, Other)
  Sender: FDA-Public Use
  Company Number: 2023A249801

PATIENT
  Age: 76 Year
  Sex: Male
  Weight: 98 kg

DRUGS (15)
  1. DAPAGLIFLOZIN [Suspect]
     Active Substance: DAPAGLIFLOZIN
     Indication: Cardiac failure
     Route: 048
     Dates: start: 2023
  2. PANTOMED [Concomitant]
     Dosage: MORNING
  3. SIMVASTATIN [Concomitant]
     Active Substance: SIMVASTATIN
     Dosage: EVENING
  4. COLCHICINE [Concomitant]
     Active Substance: COLCHICINE
     Dosage: MORNING
  5. CORDARONE [Concomitant]
     Active Substance: AMIODARONE HYDROCHLORIDE
     Dosage: MORNING
  6. ENTRESTO [Concomitant]
     Active Substance: SACUBITRIL\VALSARTAN
     Dates: start: 2023
  7. EZETIMIBE [Concomitant]
     Active Substance: EZETIMIBE
     Dosage: EVENING
  8. BUMETANIDE [Concomitant]
     Active Substance: BUMETANIDE
     Dosage: MORNING
  9. SPIRONOLACTONE [Concomitant]
     Active Substance: SPIRONOLACTONE
     Dosage: AT 12:00
  10. DAFALGAN [Concomitant]
     Active Substance: ACETAMINOPHEN
     Dosage: IF NECESSARY
  11. INDACATEROL [Concomitant]
     Active Substance: INDACATEROL
     Dosage: MORNING
  12. BISOPROLOL [Concomitant]
     Active Substance: BISOPROLOL\BISOPROLOL FUMARATE
  13. MOVICOL [Concomitant]
     Active Substance: POLYETHYLENE GLYCOL 3350\POTASSIUM CHLORIDE\SODIUM BICARBONATE\SODIUM CHLORIDE
     Dosage: IF NECESSARY
  14. ALLOPURINOL [Concomitant]
     Active Substance: ALLOPURINOL
     Dosage: MORNING
  15. XARELTO [Concomitant]
     Active Substance: RIVAROXABAN
     Dosage: MORNING

REACTIONS (4)
  - Bacterial infection [Not Recovered/Not Resolved]
  - Asymptomatic bacteriuria [Not Recovered/Not Resolved]
  - Enterococcal infection [Not Recovered/Not Resolved]
  - Urinary tract infection bacterial [Not Recovered/Not Resolved]
